FAERS Safety Report 18618165 (Version 1)
Quarter: 2020Q4

REPORT INFORMATION
  Report Type: Spontaneous
  Country: GB (occurrence: GB)
  Receive Date: 20201215
  Receipt Date: 20201215
  Transmission Date: 20210114
  Serious: Yes (Hospitalization)
  Sender: FDA-Public Use
  Company Number: GB-MYLANLABS-2020M1102489

PATIENT
  Age: 35 Year
  Sex: Female

DRUGS (6)
  1. MACROGOL [Concomitant]
     Active Substance: POLYETHYLENE GLYCOLS
     Dosage: 1 DOSAGE FORM, PRN
     Route: 048
  2. VENLAFAXINE [Concomitant]
     Active Substance: VENLAFAXINE HYDROCHLORIDE
     Dosage: 300 MILLIGRAM, QD
     Route: 048
  3. CLOZAPINE. [Suspect]
     Active Substance: CLOZAPINE
     Indication: PRODUCT USED FOR UNKNOWN INDICATION
     Dosage: 250 MILLIGRAM, QD (AT NIGHT)
     Route: 048
     Dates: end: 20200713
  4. ETHINYLESTRADIOL [Concomitant]
     Active Substance: ETHINYL ESTRADIOL
     Dosage: 35 MICROGRAM, QD
     Route: 048
  5. CASSIA ACUTIFOLIA [Concomitant]
     Dosage: 15 MILLIGRAM, QD (AT NIGHT)
     Route: 048
  6. NORGESTIMATE [Concomitant]
     Active Substance: NORGESTIMATE
     Dosage: 250 MICROGRAM, QD
     Route: 048

REACTIONS (4)
  - Dyspnoea [Recovered/Resolved]
  - Myocarditis [Recovering/Resolving]
  - Troponin increased [Recovering/Resolving]
  - Palpitations [Recovered/Resolved]

NARRATIVE: CASE EVENT DATE: 20200713
